FAERS Safety Report 13816349 (Version 9)
Quarter: 2018Q1

REPORT INFORMATION
  Report Type: Report from Study
  Country: US (occurrence: US)
  Receive Date: 20170731
  Receipt Date: 20180103
  Transmission Date: 20180508
  Serious: Yes (Other)
  Sender: FDA-Public Use
  Company Number: US-PFIZER INC-2017294249

PATIENT
  Age: 63 Year
  Sex: Female

DRUGS (3)
  1. IBRANCE [Suspect]
     Active Substance: PALBOCICLIB
     Dosage: 125 MG, DAILY
     Route: 048
     Dates: start: 20170702, end: 20171109
  2. IBRANCE [Suspect]
     Active Substance: PALBOCICLIB
     Dosage: 125 MG, DAILY
     Route: 048
     Dates: start: 20171204
  3. IBRANCE [Suspect]
     Active Substance: PALBOCICLIB
     Indication: BREAST CANCER
     Dosage: 125 MG, DAILY
     Route: 048
     Dates: start: 20170701, end: 20171110

REACTIONS (12)
  - Bone marrow failure [Unknown]
  - Constipation [Unknown]
  - Abdominal discomfort [Unknown]
  - Nausea [Recovering/Resolving]
  - Dry skin [Recovering/Resolving]
  - Pruritus [Recovering/Resolving]
  - Postoperative wound infection [Unknown]
  - Decreased appetite [Unknown]
  - Back pain [Recovering/Resolving]
  - Vomiting [Unknown]
  - Fatigue [Recovering/Resolving]
  - Increased appetite [Unknown]

NARRATIVE: CASE EVENT DATE: 2017
